FAERS Safety Report 6532073-4 (Version None)
Quarter: 2010Q1

REPORT INFORMATION
  Report Type: 
  Country: None (occurrence: None)
  Receive Date: 20100107
  Receipt Date: 20100107
  Transmission Date: 20100710
  Serious: Yes (Hospitalization)
  Sender: FDA-Public Use
  Company Number: None

PATIENT
  Age: 72 Year
  Sex: Female

DRUGS (6)
  1. CLOZARIL [Suspect]
     Indication: SCHIZOPHRENIA
     Dosage: 100MG BID PO
     Route: 048
  2. DEPAKOTE [Concomitant]
  3. SEROQUEL [Concomitant]
  4. SYNTHROID [Concomitant]
  5. LASIX [Concomitant]
  6. PRILOSEC [Concomitant]

REACTIONS (4)
  - COLON GANGRENE [None]
  - CONSTIPATION [None]
  - INTESTINAL ISCHAEMIA [None]
  - SEPTIC SHOCK [None]
